FAERS Safety Report 6551974-4 (Version None)
Quarter: 2010Q1

REPORT INFORMATION
  Report Type: 
  Country: None (occurrence: None)
  Receive Date: 20100120
  Receipt Date: 20100112
  Transmission Date: 20100710
  Serious: Yes (Congenital Anomaly)
  Sender: FDA-Public Use
  Company Number: 8028811

PATIENT
  Sex: Female
  Weight: 8.4 kg

DRUGS (7)
  1. KEPPRA [Suspect]
     Indication: EPILEPSY
     Dosage: 3000 MG, DAILY TRANSPLACENTAL
     Route: 064
     Dates: end: 20071215
  2. TEGRETOL [Suspect]
     Indication: CONVULSION
     Dosage: 1600 MG, DAILY TRANSPLACENTAL, 1800 MG, DAILY ORAL
     Route: 064
     Dates: end: 20071215
  3. OMEGA-3 FATTY ACIDS [Concomitant]
  4. ZOLOFT [Concomitant]
  5. VITAMIN TAB [Concomitant]
  6. FOLIC ACID [Concomitant]
  7. VITAMIN K TAB [Concomitant]

REACTIONS (5)
  - ANOMALY OF ORBIT, CONGENITAL [None]
  - CLEFT PALATE [None]
  - EYELID PTOSIS CONGENITAL [None]
  - MATERNAL DRUGS AFFECTING FOETUS [None]
  - SPEECH DISORDER DEVELOPMENTAL [None]
